FAERS Safety Report 8062091-9 (Version None)
Quarter: 2012Q1

REPORT INFORMATION
  Report Type: 
  Country: None (occurrence: None)
  Receive Date: 20120123
  Receipt Date: 20120113
  Transmission Date: 20120608
  Serious: Yes (Hospitalization)
  Sender: FDA-Public Use
  Company Number: US-US-EMD SERONO, INC.-7107201

PATIENT
  Sex: Female

DRUGS (3)
  1. REBIF [Suspect]
     Indication: PRODUCT USED FOR UNKNOWN INDICATION
     Route: 058
     Dates: start: 20101027
  2. INSULIN [Concomitant]
     Dosage: TWO TO THREE TIMES DAILY
  3. GABAPENTIN [Concomitant]
     Indication: PAIN

REACTIONS (7)
  - HYPERSOMNIA [None]
  - INJECTION SITE PRURITUS [None]
  - PAIN IN EXTREMITY [None]
  - CHRONIC OBSTRUCTIVE PULMONARY DISEASE [None]
  - INJECTION SITE ERYTHEMA [None]
  - INJECTION SITE HAEMATOMA [None]
  - INJECTION SITE PAIN [None]
